FAERS Safety Report 4438992-7 (Version None)
Quarter: 2004Q3

REPORT INFORMATION
  Report Type: 
  Country: None (occurrence: None)
  Receive Date: 20040830
  Receipt Date: 20040820
  Transmission Date: 20050211
  Serious: Yes (Hospitalization)
  Sender: FDA-Public Use
  Company Number: 2004229734FR

PATIENT
  Age: 69 Year
  Sex: Female

DRUGS (3)
  1. CLINDAMYCIN HCL [Suspect]
     Indication: ABSCESS LIMB
     Dosage: 1.8 G, DAILY , ORAL
     Route: 048
     Dates: start: 20040625, end: 20040706
  2. CIPROFLOXACIN [Suspect]
     Indication: ABSCESS LIMB
     Dosage: 1 G, DAILY, ORAL
     Route: 048
     Dates: start: 20040625, end: 20040706
  3. AXEPIM (CEFEPIME HYDROCHLORIDE) [Suspect]
     Indication: ABSCESS LIMB
     Dosage: 4 G, DAILY, IV
     Dates: start: 20040625, end: 20040706

REACTIONS (4)
  - ANOREXIA [None]
  - CONFUSIONAL STATE [None]
  - FLUID INTAKE REDUCED [None]
  - METABOLIC ACIDOSIS [None]
